FAERS Safety Report 20426415 (Version 1)
Quarter: 2022Q1

REPORT INFORMATION
  Report Type: Report from Study
  Country: US (occurrence: US)
  Receive Date: 20220204
  Receipt Date: 20220204
  Transmission Date: 20220424
  Serious: No
  Sender: FDA-Public Use
  Company Number: US-EXELIXIS-CABO-21042228

PATIENT
  Sex: Male

DRUGS (1)
  1. COMETRIQ [Suspect]
     Active Substance: CABOZANTINIB S-MALATE
     Indication: Medullary thyroid cancer
     Dosage: 60 MG, QD
     Dates: start: 20210623

REACTIONS (5)
  - Blister [Unknown]
  - Skin exfoliation [Unknown]
  - Diarrhoea [Unknown]
  - Blood pressure increased [Unknown]
  - Fatigue [Unknown]
